FAERS Safety Report 6046268-X (Version None)
Quarter: 2009Q1

REPORT INFORMATION
  Report Type: 
  Country: None (occurrence: None)
  Receive Date: 20090122
  Receipt Date: 20090119
  Transmission Date: 20090719
  Serious: Yes (Hospitalization)
  Sender: FDA-Public Use
  Company Number: US-BRISTOL-MYERS SQUIBB COMPANY-14476659

PATIENT
  Sex: Female

DRUGS (1)
  1. ABILIFY [Suspect]
     Dosage: INNITIATED AT 2MG, TITRATED TO 10MG

REACTIONS (1)
  - PNEUMONIA [None]
